FAERS Safety Report 4348493-2 (Version None)
Quarter: 2004Q2

REPORT INFORMATION
  Report Type: 
  Country: None (occurrence: None)
  Receive Date: 20040423
  Receipt Date: 20040416
  Transmission Date: 20050107
  Serious: Yes (Hospitalization)
  Sender: FDA-Public Use
  Company Number: 200414137BWH

PATIENT
  Sex: Male

DRUGS (1)
  1. CIPRO [Suspect]
     Indication: PROSTATE INFECTION

REACTIONS (5)
  - ARTHRALGIA [None]
  - ASTHENIA [None]
  - CLOSTRIDIAL INFECTION [None]
  - IRRITABLE BOWEL SYNDROME [None]
  - SEXUAL DYSFUNCTION [None]
